FAERS Safety Report 6637074-3 (Version None)
Quarter: 2010Q1

REPORT INFORMATION
  Report Type: 
  Country: None (occurrence: None)
  Receive Date: 20100316
  Receipt Date: 20100305
  Transmission Date: 20100710
  Serious: Yes (Hospitalization, Other)
  Sender: FDA-Public Use
  Company Number: GB-ALLERGAN-1003070US

PATIENT
  Age: 74 Year
  Sex: Male
  Weight: 74 kg

DRUGS (4)
  1. BOTULINUM TOXIN TYPE A [Suspect]
     Indication: MUSCLE SPASTICITY
     Dosage: UNK
     Route: 030
     Dates: start: 20090724, end: 20090724
  2. BLINDED PLACEBO [Suspect]
     Indication: MUSCLE SPASTICITY
     Dosage: UNK
     Route: 030
     Dates: start: 20090724, end: 20090724
  3. BOTULINUM TOXIN TYPE A [Suspect]
     Dosage: UNK
     Route: 030
     Dates: start: 20091019, end: 20091019
  4. BLINDED PLACEBO [Suspect]
     Dosage: UNK
     Route: 030
     Dates: start: 20091019, end: 20091019

REACTIONS (1)
  - SWELLING FACE [None]
